FAERS Safety Report 25369181 (Version 3)
Quarter: 2025Q2

REPORT INFORMATION
  Report Type: Report from Study
  Country: CA (occurrence: CA)
  Receive Date: 20250528
  Receipt Date: 20250626
  Transmission Date: 20250717
  Serious: Yes (Other)
  Sender: JOHNSON AND JOHNSON
  Company Number: CA-JNJFOC-20250529604

PATIENT
  Age: 47 Year
  Sex: Male

DRUGS (1)
  1. SIMPONI [Suspect]
     Active Substance: GOLIMUMAB
     Indication: Psoriatic arthropathy
     Route: 058
     Dates: start: 20230919

REACTIONS (4)
  - Psoriatic arthropathy [Not Recovered/Not Resolved]
  - Device leakage [Unknown]
  - Accidental exposure to product [Unknown]
  - Incorrect dose administered [Unknown]
